FAERS Safety Report 25125851 (Version 1)
Quarter: 2025Q1

REPORT INFORMATION
  Report Type: Spontaneous
  Country: CA (occurrence: CA)
  Receive Date: 20250326
  Receipt Date: 20250326
  Transmission Date: 20250408
  Serious: Yes (Other)
  Sender: NOVARTIS
  Company Number: CA-SANDOZ-SDZ2025CA017021

PATIENT
  Age: 29 Year
  Sex: Male

DRUGS (8)
  1. CYCLOSPORINE [Suspect]
     Active Substance: CYCLOSPORINE
     Indication: Familial haemophagocytic lymphohistiocytosis
     Route: 065
  2. DEXAMETHASONE [Suspect]
     Active Substance: DEXAMETHASONE
     Indication: Familial haemophagocytic lymphohistiocytosis
     Route: 065
  3. ELTROMBOPAG [Suspect]
     Active Substance: ELTROMBOPAG
     Indication: Familial haemophagocytic lymphohistiocytosis
     Route: 065
  4. ETOPOSIDE [Suspect]
     Active Substance: ETOPOSIDE
     Indication: Familial haemophagocytic lymphohistiocytosis
     Route: 065
  5. ANAKINRA [Suspect]
     Active Substance: ANAKINRA
     Indication: Familial haemophagocytic lymphohistiocytosis
     Route: 065
  6. HUMAN IMMUNOGLOBULIN G [Suspect]
     Active Substance: HUMAN IMMUNOGLOBULIN G
     Indication: Familial haemophagocytic lymphohistiocytosis
     Route: 065
  7. TOCILIZUMAB [Suspect]
     Active Substance: TOCILIZUMAB
     Indication: Familial haemophagocytic lymphohistiocytosis
     Route: 065
  8. PREDNISONE [Concomitant]
     Active Substance: PREDNISONE
     Indication: Familial haemophagocytic lymphohistiocytosis
     Route: 065

REACTIONS (10)
  - Hyperferritinaemia [Unknown]
  - Pancytopenia [Unknown]
  - Lymphadenopathy [Unknown]
  - Splenomegaly [Unknown]
  - Hypofibrinogenaemia [Unknown]
  - Disease progression [Unknown]
  - Haemophagocytic lymphohistiocytosis [Unknown]
  - Pyrexia [Unknown]
  - Therapy non-responder [Unknown]
  - Product use in unapproved indication [Unknown]
